FAERS Safety Report 6400514-9 (Version None)
Quarter: 2009Q4

REPORT INFORMATION
  Report Type: 
  Country: None (occurrence: None)
  Receive Date: 20091013
  Receipt Date: 20091013
  Transmission Date: 20100525
  Serious: Yes (Hospitalization, Other)
  Sender: FDA-Public Use
  Company Number: None

PATIENT
  Age: 76 Year
  Sex: Male
  Weight: 79.3795 kg

DRUGS (1)
  1. CILOSTAZOL [Suspect]
     Indication: INTERMITTENT CLAUDICATION
     Dosage: 50 MG BID PO APPROX TWO YEARS
     Route: 048

REACTIONS (3)
  - FATIGUE [None]
  - ORAL DISORDER [None]
  - WHITE BLOOD CELL COUNT DECREASED [None]
